FAERS Safety Report 21443605 (Version 1)
Quarter: 2022Q4

REPORT INFORMATION
  Report Type: Spontaneous
  Country: US (occurrence: US)
  Receive Date: 20221012
  Receipt Date: 20221012
  Transmission Date: 20230113
  Serious: No
  Sender: FDA-Public Use
  Company Number: US-drreddys-SPO/USA/22/0155294

PATIENT
  Age: 17 Year
  Sex: Female

DRUGS (1)
  1. ZENATANE [Suspect]
     Active Substance: ISOTRETINOIN
     Indication: Product used for unknown indication
     Dosage: RMA ISSUE DATE: 16 FEBRUARY 2022 02:06:59 PM, 18 MARCH 2022 12:48:34 PM, 20 APRIL 2022 02:28:11 PM,

REACTIONS (1)
  - Treatment noncompliance [Unknown]
